FAERS Safety Report 10496228 (Version 5)
Quarter: 2015Q2

REPORT INFORMATION
  Report Type: Report from Study
  Country: US (occurrence: US)
  Receive Date: 20141003
  Receipt Date: 20150608
  Transmission Date: 20150821
  Serious: Yes (Hospitalization)
  Sender: FDA-Public Use
  Company Number: US-ROCHE-1458563

PATIENT
  Age: 51 Year
  Sex: Female
  Weight: 88.2 kg

DRUGS (14)
  1. ATIVAN [Concomitant]
     Active Substance: LORAZEPAM
     Indication: PROPHYLAXIS
     Route: 065
     Dates: start: 20140821
  2. CLARITIN [Concomitant]
     Active Substance: LORATADINE
     Indication: PRE-EXISTING DISEASE
     Route: 065
     Dates: start: 20140824
  3. SPIRONOLACTONE. [Concomitant]
     Active Substance: SPIRONOLACTONE
     Indication: PRE-EXISTING DISEASE
     Route: 065
     Dates: start: 2012
  4. PRILOSEC [Concomitant]
     Active Substance: OMEPRAZOLE MAGNESIUM
     Indication: PROPHYLAXIS
     Route: 065
     Dates: start: 20140821
  5. PROTOPIC [Concomitant]
     Active Substance: TACROLIMUS
     Indication: PRE-EXISTING DISEASE
     Route: 065
     Dates: start: 201406
  6. ALBUTEROL. [Concomitant]
     Active Substance: ALBUTEROL
     Indication: PRE-EXISTING DISEASE
     Route: 065
     Dates: start: 2004
  7. TRASTUZUMAB EMTANSINE [Suspect]
     Active Substance: ADO-TRASTUZUMAB EMTANSINE
     Indication: HER-2 POSITIVE BREAST CANCER
     Dosage: DATE OF LAST DOSE PRIOR TO SAE: 21/AUG/2014 AT 11:25
     Route: 042
     Dates: start: 20140821
  8. KLONOPIN [Concomitant]
     Active Substance: CLONAZEPAM
     Indication: PRE-EXISTING DISEASE
     Route: 065
     Dates: start: 20140804
  9. PERTUZUMAB [Suspect]
     Active Substance: PERTUZUMAB
     Indication: HER-2 POSITIVE BREAST CANCER
     Dosage: LOADING DOSE?DATE OF LAST DOSE PRIOR TO SAE: 21/AUG/2014 AT 09:23
     Route: 042
     Dates: start: 20140821, end: 20140821
  10. TRIAMCINOLON ACETONID [Concomitant]
     Indication: PRE-EXISTING DISEASE
     Route: 065
     Dates: start: 201406
  11. ACETAMINOPHEN. [Concomitant]
     Active Substance: ACETAMINOPHEN
     Indication: PRE-EXISTING DISEASE
     Route: 065
     Dates: start: 20140804
  12. NASONEX [Concomitant]
     Active Substance: MOMETASONE FUROATE
     Route: 065
     Dates: start: 2014
  13. ALLEGRA [Concomitant]
     Active Substance: FEXOFENADINE HYDROCHLORIDE
     Indication: PRE-EXISTING DISEASE
  14. LIDOCAINE. [Concomitant]
     Active Substance: LIDOCAINE
     Indication: PROPHYLAXIS
     Route: 065
     Dates: start: 20140826

REACTIONS (1)
  - Deep vein thrombosis [Recovered/Resolved]

NARRATIVE: CASE EVENT DATE: 20140830
